FAERS Safety Report 4570340-4 (Version None)
Quarter: 2005Q1

REPORT INFORMATION
  Report Type: 
  Country: None (occurrence: None)
  Receive Date: 20050204
  Receipt Date: 20041221
  Transmission Date: 20050727
  Serious: Yes (Death)
  Sender: FDA-Public Use
  Company Number: GB-ROCHE-390379

PATIENT
  Age: 21 Year
  Sex: Male
  Weight: 89 kg

DRUGS (1)
  1. ROACCUTANE [Suspect]
     Indication: ACNE
     Route: 048
     Dates: start: 20030715, end: 20031215

REACTIONS (1)
  - COMPLETED SUICIDE [None]
